FAERS Safety Report 6384324-7 (Version None)
Quarter: 2009Q4

REPORT INFORMATION
  Report Type: 
  Country: None (occurrence: None)
  Receive Date: 20091001
  Receipt Date: 20090928
  Transmission Date: 20100525
  Serious: Yes (Hospitalization)
  Sender: FDA-Public Use
  Company Number: JP-BRISTOL-MYERS SQUIBB COMPANY-14774533

PATIENT
  Age: 41 Year
  Weight: 51 kg

DRUGS (12)
  1. BRIPLATIN INJ [Suspect]
     Indication: CERVIX CARCINOMA RECURRENT
     Dosage: C1:15JUN09-15JUN09 (80MG) C2:13JUL09-13JUL09 (80MG) C3:10AUG09(80MG) C4:17SEP09(80MG)
     Route: 042
     Dates: start: 20090615, end: 20090810
  2. S-1 [Suspect]
     Indication: CERVIX CARCINOMA RECURRENT
     Dosage: C1:15JUN09-15JUN09 (120MG) C2:13JUL09(100MG/D) C3:10AUG09-23AUG09 (100MG) C4:17SEP09(100/D)
     Route: 048
     Dates: start: 20090615, end: 20090823
  3. PRIMPERAN [Suspect]
     Indication: NAUSEA
     Route: 048
     Dates: start: 20090622, end: 20090908
  4. CHLOMY-P [Concomitant]
     Indication: VAGINAL DISCHARGE
     Dosage: INTRAVAGINAL
     Route: 067
     Dates: start: 20090629
  5. FLAGYL [Concomitant]
     Indication: VAGINAL DISCHARGE
     Dosage: INTRAVAGINAL
     Dates: start: 20090629
  6. RED BLOOD CELLS [Concomitant]
     Indication: HAEMOGLOBIN
     Dosage: FREQ:TWICE
     Route: 041
     Dates: start: 20090827, end: 20090831
  7. AZUNOL [Concomitant]
     Indication: STOMATITIS
     Dosage: AZUNOL GARGLE
     Route: 048
     Dates: start: 20090817, end: 20090828
  8. AZUNOL [Concomitant]
     Indication: CHEILITIS
     Dosage: AZUNOL GARGLE
     Route: 048
     Dates: start: 20090817, end: 20090828
  9. GASLON N [Concomitant]
     Indication: STOMATITIS
     Dosage: GASLON N-OD,02JUL09 TO 09SEP09
     Route: 048
     Dates: start: 20090730
  10. GASLON N [Concomitant]
     Indication: CHEILITIS
     Dosage: GASLON N-OD,02JUL09 TO 09SEP09
     Route: 048
     Dates: start: 20090730
  11. APHTASOLON [Concomitant]
     Indication: STOMATITIS
     Route: 048
     Dates: start: 20090817, end: 20090828
  12. APHTASOLON [Concomitant]
     Indication: CHEILITIS
     Route: 048
     Dates: start: 20090817, end: 20090828

REACTIONS (1)
  - EXTRAPYRAMIDAL DISORDER [None]
